FAERS Safety Report 9425000 (Version 2)
Quarter: 2013Q3

REPORT INFORMATION
  Report Type: Spontaneous
  Country: US (occurrence: US)
  Receive Date: 20130729
  Receipt Date: 20130805
  Transmission Date: 20140515
  Serious: Yes (Other)
  Sender: FDA-Public Use
  Company Number: US-PFIZER INC-2013219901

PATIENT
  Age: 31 Year
  Sex: Female
  Weight: 99.77 kg

DRUGS (3)
  1. ZOLOFT [Suspect]
     Indication: DEPRESSION
     Dosage: 100 MG, UNK
     Dates: start: 201211, end: 2013
  2. LOSARTAN POTASSIUM [Suspect]
     Indication: HYPERTENSION
     Dosage: UNK, DAILY
  3. HALDOL [Interacting]
     Dosage: 5 MG, UNK

REACTIONS (3)
  - Drug interaction [Unknown]
  - Delusion [Unknown]
  - Dizziness [Unknown]
